FAERS Safety Report 7722156-5 (Version None)
Quarter: 2011Q3

REPORT INFORMATION
  Report Type: 
  Country: None (occurrence: None)
  Receive Date: 20110831
  Receipt Date: 20110824
  Transmission Date: 20111222
  Serious: Yes (Hospitalization)
  Sender: FDA-Public Use
  Company Number: CA-JNJFOC-20110311403

PATIENT
  Sex: Male
  Weight: 112 kg

DRUGS (2)
  1. REMICADE [Suspect]
     Indication: CROHN'S DISEASE
     Route: 042
     Dates: start: 20081001
  2. REMICADE [Suspect]
     Route: 042
     Dates: start: 20110123

REACTIONS (2)
  - CARPAL TUNNEL SYNDROME [None]
  - POLLAKIURIA [None]
